FAERS Safety Report 25572720 (Version 1)
Quarter: 2025Q3

REPORT INFORMATION
  Report Type: Spontaneous
  Country: US (occurrence: US)
  Receive Date: 20250717
  Receipt Date: 20250717
  Transmission Date: 20251020
  Serious: No
  Sender: SANOFI AVENTIS
  Company Number: US-SANOFI-02585943

PATIENT
  Age: 80 Year
  Sex: Female

DRUGS (1)
  1. DUPIXENT [Suspect]
     Active Substance: DUPILUMAB
     Dates: start: 202501, end: 202507

REACTIONS (2)
  - Arthralgia [Unknown]
  - Rash [Unknown]

NARRATIVE: CASE EVENT DATE: 20250701
